FAERS Safety Report 24376538 (Version 1)
Quarter: 2024Q3

REPORT INFORMATION
  Report Type: Report from Study
  Country: CN (occurrence: CN)
  Receive Date: 20240930
  Receipt Date: 20240930
  Transmission Date: 20241017
  Serious: Yes (Hospitalization, Other)
  Sender: Unknown Manufacturer
  Company Number: CN-CSTONE PHARMACEUTICALS (SUZHOU) CO., LTD.-2024CN01180

PATIENT

DRUGS (3)
  1. PRALSETINIB [Suspect]
     Active Substance: PRALSETINIB
     Indication: Non-small cell lung cancer
     Dosage: 200 MILLIGRAM, QD
     Route: 048
     Dates: start: 202302, end: 202306
  2. PRALSETINIB [Suspect]
     Active Substance: PRALSETINIB
     Dosage: UNK
     Route: 048
  3. AVAPRITINIB [Concomitant]
     Active Substance: AVAPRITINIB
     Indication: Non-small cell lung cancer

REACTIONS (5)
  - Hospitalisation [Recovered/Resolved]
  - Pneumonia [Recovering/Resolving]
  - Pain [Recovering/Resolving]
  - Cough [Recovering/Resolving]
  - Pyrexia [Recovering/Resolving]

NARRATIVE: CASE EVENT DATE: 20230601
